FAERS Safety Report 4597521-8 (Version None)
Quarter: 2005Q1

REPORT INFORMATION
  Report Type: 
  Country: None (occurrence: None)
  Receive Date: 20050228
  Receipt Date: 20050228
  Transmission Date: 20050727
  Serious: Yes (Hospitalization)
  Sender: FDA-Public Use
  Company Number: None

PATIENT
  Sex: Male

DRUGS (2)
  1. PREDNISONE [Suspect]
     Indication: CROHN'S DISEASE
     Dates: start: 20050106, end: 20050109
  2. INFLIXIMAB [Suspect]
     Indication: CROHN'S DISEASE
     Dates: start: 20041201

REACTIONS (5)
  - CROHN'S DISEASE [None]
  - HEPATITIS [None]
  - MULTI-ORGAN FAILURE [None]
  - PANCREATITIS [None]
  - SEPTIC SHOCK [None]
